FAERS Safety Report 15191810 (Version 1)
Quarter: 2018Q3

REPORT INFORMATION
  Report Type: Spontaneous
  Country: US (occurrence: US)
  Receive Date: 20180626
  Receipt Date: 20180626
  Transmission Date: 20181010
  Serious: Yes (Other)
  Sender: FDA-Public Use
  Company Number: None

PATIENT
  Age: 48 Year
  Sex: Female
  Weight: 63 kg

DRUGS (3)
  1. SALONPAS PAIN RELIEVING [Suspect]
     Active Substance: CAMPHOR (SYNTHETIC)\MENTHOL\METHYL SALICYLATE
     Indication: FRACTURED COCCYX
     Dosage: OTHER STRENGTH:PATCHES;QUANTITY:60 PATCH(ES);?
     Route: 062
     Dates: start: 20180617, end: 20180621
  2. SALONPAS PAIN RELIEVING [Suspect]
     Active Substance: CAMPHOR (SYNTHETIC)\MENTHOL\METHYL SALICYLATE
     Indication: COCCYDYNIA
     Dosage: OTHER STRENGTH:PATCHES;QUANTITY:60 PATCH(ES);?
     Route: 062
     Dates: start: 20180617, end: 20180621
  3. SALONPAS PAIN RELIEVING [Suspect]
     Active Substance: CAMPHOR (SYNTHETIC)\MENTHOL\METHYL SALICYLATE
     Indication: BONE CONTUSION
     Dosage: OTHER STRENGTH:PATCHES;QUANTITY:60 PATCH(ES);?
     Route: 062
     Dates: start: 20180617, end: 20180621

REACTIONS (3)
  - Dysuria [None]
  - Blood urine present [None]
  - Incorrect dose administered by device [None]

NARRATIVE: CASE EVENT DATE: 20180620
